FAERS Safety Report 21302561 (Version 2)
Quarter: 2022Q3

REPORT INFORMATION
  Report Type: Spontaneous
  Country: US (occurrence: US)
  Receive Date: 20220907
  Receipt Date: 20220909
  Transmission Date: 20221027
  Serious: No
  Sender: FDA-Public Use
  Company Number: US-NOVARTISTESTPH-NVSC2022US199417

PATIENT
  Sex: Female

DRUGS (1)
  1. XIIDRA [Suspect]
     Active Substance: LIFITEGRAST
     Indication: Product used for unknown indication
     Dosage: UNK
     Route: 047
     Dates: start: 202208

REACTIONS (9)
  - Irritability [Unknown]
  - Eye disorder [Unknown]
  - Photophobia [Unknown]
  - Inflammation [Unknown]
  - Vitreous floaters [Unknown]
  - Impaired healing [Unknown]
  - Pain [Unknown]
  - Vision blurred [Unknown]
  - Drug ineffective [Unknown]
